FAERS Safety Report 6147962-2 (Version None)
Quarter: 2009Q2

REPORT INFORMATION
  Report Type: 
  Country: None (occurrence: None)
  Receive Date: 20090403
  Receipt Date: 20090323
  Transmission Date: 20091009
  Serious: Yes (Hospitalization, Disabling)
  Sender: FDA-Public Use
  Company Number: 2009-191438-NL

PATIENT
  Age: 21 Year
  Sex: Female

DRUGS (1)
  1. ETONOGESTREL (BATCH #: 162122/215535) [Suspect]
     Dosage: DF
     Dates: start: 20071106, end: 20080520

REACTIONS (4)
  - HYPOAESTHESIA [None]
  - MENSTRUATION IRREGULAR [None]
  - NERVE INJURY [None]
  - PARAESTHESIA [None]
